FAERS Safety Report 9796118 (Version 2)
Quarter: 2014Q3

REPORT INFORMATION
  Report Type: Spontaneous
  Country: US (occurrence: US)
  Receive Date: 20140103
  Receipt Date: 20140813
  Transmission Date: 20150326
  Serious: Yes (Hospitalization)
  Sender: FDA-Public Use
  Company Number: US-009507513-1401USA000449

PATIENT
  Sex: Female

DRUGS (1)
  1. NUVARING [Suspect]
     Active Substance: ETHINYL ESTRADIOL\ETONOGESTREL
     Dosage: UNK
     Route: 067
     Dates: end: 201208

REACTIONS (11)
  - Deep vein thrombosis [Unknown]
  - Rhinoplasty [Unknown]
  - Pelvic venous thrombosis [Unknown]
  - Vascular stent insertion [Unknown]
  - Hepatic cyst [Unknown]
  - Pulmonary mass [Unknown]
  - Shoulder operation [Unknown]
  - Venous stenosis [Unknown]
  - Polycystic ovaries [Unknown]
  - Night sweats [Unknown]
  - Depression [Unknown]

NARRATIVE: CASE EVENT DATE: 20120730
